FAERS Safety Report 9525631 (Version 1)
Quarter: 2013Q1

REPORT INFORMATION
  Report Type: Spontaneous
  Country: US (occurrence: None)
  Receive Date: 20130314
  Receipt Date: 20130314
  Transmission Date: 20140127
  Serious: No
  Sender: FDA-Public Use
  Company Number: 1301USA014174

PATIENT
  Age: 47 Year
  Sex: Female

DRUGS (4)
  1. VICTRELIS (BOCEPREVIR) CAPSULE, 200MG [Suspect]
     Indication: HEPATITIS C
     Dosage: 800 MG, TID, ORAL
     Route: 048
  2. RIBASPHERE (RIBAVIRIN) [Suspect]
  3. PEGASYS (PEGINTERFERON ALFA-2A) [Suspect]
  4. TRAZODONE HYDROCHLORIDE (TRAZODONE HYDROCHLORIDE) [Concomitant]

REACTIONS (5)
  - Nausea [None]
  - Abdominal discomfort [None]
  - Pruritus [None]
  - Contusion [None]
  - Product quality issue [None]
